FAERS Safety Report 8992056 (Version 1)
Quarter: 2012Q4

REPORT INFORMATION
  Report Type: 
  Country: ES (occurrence: ES)
  Receive Date: 20121231
  Receipt Date: 20121231
  Transmission Date: 20130627
  Serious: Yes (Hospitalization, Other)
  Sender: FDA-Public Use
  Company Number: ES-009507513-1212ESP008938

PATIENT
  Age: 50 Year
  Sex: Female

DRUGS (3)
  1. DESOGESTREL\ETHINYL ESTRADIOL\NORETHINDRONE [Suspect]
     Indication: CONTRACEPTION
     Route: 048
     Dates: start: 1982, end: 20121115
  2. ACETAMINOPHEN [Concomitant]
     Indication: ABDOMINAL PAIN
     Route: 048
     Dates: start: 20121112, end: 20121115
  3. ACECLOFENAC [Concomitant]
     Indication: ABDOMINAL PAIN
     Route: 048
     Dates: start: 20121112, end: 20121112

REACTIONS (2)
  - Renal cortical necrosis [Not Recovered/Not Resolved]
  - Renal failure acute [Not Recovered/Not Resolved]
